FAERS Safety Report 4608037-4 (Version None)
Quarter: 2005Q2

REPORT INFORMATION
  Report Type: 
  Country: None (occurrence: None)
  Receive Date: 20050303
  Receipt Date: 20041110
  Transmission Date: 20051028
  Serious: No
  Sender: FDA-Public Use
  Company Number: 210335

PATIENT
  Age: 64 Year
  Sex: Female

DRUGS (1)
  1. XOLAIR [Suspect]

REACTIONS (3)
  - HEADACHE [None]
  - INCREASED UPPER AIRWAY SECRETION [None]
  - INJECTION SITE SWELLING [None]
